FAERS Safety Report 7092483-6 (Version None)
Quarter: 2010Q4

REPORT INFORMATION
  Report Type: 
  Country: None (occurrence: None)
  Receive Date: 20101108
  Receipt Date: 20101108
  Transmission Date: 20110411
  Serious: No
  Sender: FDA-Public Use
  Company Number: None

PATIENT
  Age: 63 Year
  Sex: Male
  Weight: 77.79 kg

DRUGS (1)
  1. VANCOMYCIN [Suspect]
     Indication: OSTEOMYELITIS
     Dosage: 750 MG BID IV
     Route: 042
     Dates: start: 20100927, end: 20101011

REACTIONS (5)
  - BLISTER [None]
  - ERYTHEMA MULTIFORME [None]
  - LINEAR IGA DISEASE [None]
  - PRURITUS [None]
  - URTICARIA [None]
